FAERS Safety Report 9031273 (Version 2)
Quarter: 2013Q1

REPORT INFORMATION
  Report Type: Report from Study
  Country: DE (occurrence: DE)
  Receive Date: 20130123
  Receipt Date: 20130204
  Transmission Date: 20140127
  Serious: Yes (Other)
  Sender: FDA-Public Use
  Company Number: DE-TEVA-380628GER

PATIENT
  Age: 42 Year
  Sex: Female
  Weight: 61 kg

DRUGS (9)
  1. MYOCET [Suspect]
     Indication: BREAST CANCER
     Route: 042
     Dates: start: 20121108
  2. PACLITAXEL [Suspect]
     Indication: BREAST CANCER
     Route: 042
     Dates: start: 20121108
  3. TRASTUZUMAB [Suspect]
     Indication: BREAST CANCER
     Route: 042
     Dates: start: 20121108
  4. LAPATINIB [Suspect]
     Indication: BREAST CANCER
     Dosage: 750 MILLIGRAM DAILY;
     Route: 048
     Dates: start: 20121108
  5. KEVATRIL [Concomitant]
     Dosage: 2 MILLIGRAM DAILY;
     Dates: start: 20121108
  6. EMEND [Concomitant]
     Dosage: 150 MILLIGRAM DAILY;
     Dates: start: 20121108
  7. DEXAMETHASON [Concomitant]
     Dosage: 4 MILLIGRAM DAILY;
     Dates: start: 20121108
  8. RANITIC [Concomitant]
     Dosage: 50 MILLIGRAM DAILY;
     Dates: start: 20121108
  9. TAVEGIL [Concomitant]
     Dosage: 2 MILLIGRAM DAILY;
     Dates: start: 20121108

REACTIONS (1)
  - Alveolitis [Recovered/Resolved]
